FAERS Safety Report 18101173 (Version 1)
Quarter: 2020Q3

REPORT INFORMATION
  Report Type: Spontaneous
  Country: GB (occurrence: GB)
  Receive Date: 20200801
  Receipt Date: 20200801
  Transmission Date: 20201103
  Serious: Yes (Hospitalization, Other)
  Sender: FDA-Public Use
  Company Number: GB-TEVA-2020-GB-1807107

PATIENT
  Age: 76 Year
  Sex: Male

DRUGS (11)
  1. AZITHROMYCIN ANHYDROUS. [Interacting]
     Active Substance: AZITHROMYCIN ANHYDROUS
     Indication: CHRONIC OBSTRUCTIVE PULMONARY DISEASE
     Dosage: 750 MG
     Route: 048
     Dates: start: 20130816, end: 20200708
  2. ACETYLSALICYLIC ACID [Concomitant]
     Active Substance: ASPIRIN
  3. SALBUTAMOL [Concomitant]
     Active Substance: ALBUTEROL
  4. BISOPROLOL FUMARATE. [Concomitant]
     Active Substance: BISOPROLOL FUMARATE
  5. PROCHLORPERAZINE. [Concomitant]
     Active Substance: PROCHLORPERAZINE
  6. SPIRONOLACTONE. [Concomitant]
     Active Substance: SPIRONOLACTONE
  7. LANSOPRAZOLE. [Concomitant]
     Active Substance: LANSOPRAZOLE
  8. TADALAFIL. [Concomitant]
     Active Substance: TADALAFIL
  9. ATORVASTATIN [Suspect]
     Active Substance: ATORVASTATIN
     Indication: ACUTE CORONARY SYNDROME
     Dosage: 80 MG
     Route: 048
     Dates: start: 20170117, end: 20200708
  10. SALMETEROL AND FLUTICASONE [Concomitant]
     Active Substance: FLUTICASONE PROPIONATE\SALMETEROL XINAFOATE
  11. RAMIPRIL. [Concomitant]
     Active Substance: RAMIPRIL

REACTIONS (10)
  - Blood creatine phosphokinase increased [Unknown]
  - Malaise [Unknown]
  - Cholangiocarcinoma [Unknown]
  - Disease progression [Unknown]
  - Muscular weakness [Unknown]
  - Renal failure [Unknown]
  - Urine output decreased [Unknown]
  - Cholangitis [Unknown]
  - Jaundice [Unknown]
  - Drug interaction [Not Recovered/Not Resolved]

NARRATIVE: CASE EVENT DATE: 20200704
